FAERS Safety Report 17157872 (Version 1)
Quarter: 2019Q4

REPORT INFORMATION
  Report Type: Spontaneous
  Country: US (occurrence: US)
  Receive Date: 20191213
  Receipt Date: 20191213
  Transmission Date: 20200122
  Serious: Yes (Death)
  Sender: FDA-Public Use
  Company Number: None

PATIENT
  Age: 43 Year
  Sex: Male

DRUGS (4)
  1. IRON TAB 18MG [Concomitant]
     Dates: start: 20170214, end: 20190902
  2. CAPECITABINE. [Suspect]
     Active Substance: CAPECITABINE
     Indication: RECTAL CANCER
     Route: 048
     Dates: start: 20171115, end: 20190902
  3. CAPECITABINE. [Suspect]
     Active Substance: CAPECITABINE
     Indication: RECTAL CANCER
     Dosage: ?          OTHER FREQUENCY:3 TAB DAY 1-14;?
     Route: 048
     Dates: start: 20171115, end: 20190902
  4. PROTONIX TAB 40MG [Concomitant]
     Dates: start: 20170214, end: 20190902

REACTIONS (1)
  - Death [None]

NARRATIVE: CASE EVENT DATE: 20190902
